FAERS Safety Report 9258500 (Version 4)
Quarter: 2013Q2

REPORT INFORMATION
  Report Type: Report from Study
  Country: FR (occurrence: FR)
  Receive Date: 20130426
  Receipt Date: 20130620
  Transmission Date: 20140414
  Serious: Yes (Other)
  Sender: FDA-Public Use
  Company Number: FR-AMGEN-FRACT2013017479

PATIENT
  Age: 64 Year
  Sex: Male
  Weight: 85 kg

DRUGS (4)
  1. PANITUMUMAB [Suspect]
     Indication: GASTROOESOPHAGEAL CANCER
     Dosage: 500 MG, UNK
     Route: 042
     Dates: start: 20120719
  2. OXALIPLATIN [Concomitant]
     Indication: GASTROOESOPHAGEAL CANCER
     Dosage: 130 MG, UNK
     Route: 042
     Dates: start: 20120719, end: 20121115
  3. FOLINIC ACID [Concomitant]
     Indication: GASTROOESOPHAGEAL CANCER
     Dosage: 800 MG, UNK
     Route: 042
     Dates: start: 20120719
  4. 5-FU [Concomitant]
     Indication: GASTROOESOPHAGEAL CANCER
     Dosage: UNK
     Route: 042
     Dates: start: 20120719

REACTIONS (2)
  - Anal fissure [Recovered/Resolved]
  - Paronychia [Recovered/Resolved]
